FAERS Safety Report 7399164-X (Version None)
Quarter: 2011Q2

REPORT INFORMATION
  Report Type: 
  Country: None (occurrence: None)
  Receive Date: 20110407
  Receipt Date: 20110404
  Transmission Date: 20111010
  Serious: Yes (Death, Other)
  Sender: FDA-Public Use
  Company Number: RU-BRISTOL-MYERS SQUIBB COMPANY-15581937

PATIENT
  Age: 57 Year
  Sex: Male

DRUGS (2)
  1. COMBIVIR [Suspect]
     Indication: HIV INFECTION
     Dates: start: 20101001
  2. ATAZANAVIR CAPS [Suspect]
     Indication: HIV INFECTION
     Dates: start: 20101001

REACTIONS (1)
  - LUNG NEOPLASM MALIGNANT [None]
